FAERS Safety Report 10705832 (Version 3)
Quarter: 2015Q2

REPORT INFORMATION
  Report Type: Spontaneous
  Country: DE (occurrence: DE)
  Receive Date: 20150112
  Receipt Date: 20150625
  Transmission Date: 20150821
  Serious: Yes (Life-Threatening, Other)
  Sender: FDA-Public Use
  Company Number: DE-ROCHE-1484894

PATIENT
  Age: 19 Year
  Sex: Male
  Weight: 88 kg

DRUGS (7)
  1. CERTICAN [Suspect]
     Active Substance: EVEROLIMUS
     Indication: PRODUCT USED FOR UNKNOWN INDICATION
     Route: 065
  2. FOLINIC ACID [Concomitant]
     Active Substance: LEUCOVORIN
  3. CELLCEPT [Suspect]
     Active Substance: MYCOPHENOLATE MOFETIL\MYCOPHENOLATE MOFETIL HYDROCHLORIDE
     Indication: TRANSPLANT REJECTION
     Dosage: CELLCEPT 250 MG (LOT NO. M1431B05) AND CELLCEPT 500 MG (LOT NO. M3237B02)
     Route: 048
     Dates: start: 20100413, end: 20141203
  4. CELLCEPT [Suspect]
     Active Substance: MYCOPHENOLATE MOFETIL\MYCOPHENOLATE MOFETIL HYDROCHLORIDE
     Route: 048
     Dates: start: 20100413, end: 20141203
  5. VITAMIN B12 [Concomitant]
     Active Substance: CYANOCOBALAMIN
  6. BICANORM [Suspect]
     Active Substance: SODIUM BICARBONATE
     Indication: PRODUCT USED FOR UNKNOWN INDICATION
     Route: 065
  7. EVEROLIMUS [Concomitant]
     Active Substance: EVEROLIMUS
     Route: 065

REACTIONS (6)
  - Malabsorption [Unknown]
  - Diarrhoea [Not Recovered/Not Resolved]
  - Drug ineffective [Unknown]
  - Hyperkalaemia [Unknown]
  - Renal failure [Unknown]
  - Infection [Unknown]

NARRATIVE: CASE EVENT DATE: 20141009
